FAERS Safety Report 19917546 (Version 1)
Quarter: 2021Q4

REPORT INFORMATION
  Report Type: Spontaneous
  Country: US (occurrence: US)
  Receive Date: 20211004
  Receipt Date: 20211004
  Transmission Date: 20220303
  Serious: No
  Sender: FDA-Public Use
  Company Number: US-ELI_LILLY_AND_COMPANY-US202110000524

PATIENT
  Sex: Female

DRUGS (4)
  1. REYVOW [Suspect]
     Active Substance: LASMIDITAN
     Indication: Migraine
     Dosage: 100 MG, UNKNOWN
     Route: 065
     Dates: start: 20210917
  2. LAMICTAL [Concomitant]
     Active Substance: LAMOTRIGINE
     Indication: Epilepsy
  3. AMINOVIT [Concomitant]
     Indication: Product used for unknown indication
  4. PHENOBARB [PHENOBARBITAL] [Concomitant]
     Indication: Epilepsy

REACTIONS (1)
  - Drug ineffective [Unknown]
